FAERS Safety Report 12914978 (Version 1)
Quarter: 2016Q4

REPORT INFORMATION
  Report Type: Spontaneous
  Country: US (occurrence: US)
  Receive Date: 20161106
  Receipt Date: 20161106
  Transmission Date: 20170207
  Serious: No
  Sender: FDA-Public Use
  Company Number: US-RELYPSA-RLY2016002401

PATIENT
  Age: 69 Year
  Sex: Male

DRUGS (6)
  1. VITAMIN D                          /00107901/ [Concomitant]
     Active Substance: ERGOCALCIFEROL
  2. ULORIC [Concomitant]
     Active Substance: FEBUXOSTAT
  3. HYDROCHLOROTHIAZIDE. [Concomitant]
     Active Substance: HYDROCHLOROTHIAZIDE
  4. METOPROLOL. [Concomitant]
     Active Substance: METOPROLOL
  5. ANAGRELIDE [Concomitant]
     Active Substance: ANAGRELIDE
  6. VELTASSA [Suspect]
     Active Substance: PATIROMER
     Indication: HYPERKALAEMIA
     Dosage: 16.8 G, Q.D.
     Route: 048
     Dates: start: 20160804, end: 201609

REACTIONS (1)
  - Adverse event [Unknown]

NARRATIVE: CASE EVENT DATE: 201609
